FAERS Safety Report 5160822-9 (Version None)
Quarter: 2006Q4

REPORT INFORMATION
  Report Type: 
  Country: None (occurrence: None)
  Receive Date: 20061121
  Receipt Date: 20061107
  Transmission Date: 20070319
  Serious: Yes (Hospitalization)
  Sender: FDA-Public Use
  Company Number: 2006JP004629

PATIENT
  Age: 63 Year
  Sex: Male

DRUGS (9)
  1. PROGRAF [Suspect]
     Indication: TRANSPLANT
     Dosage: 2 MG,
     Dates: end: 20060526
  2. PROPOFOL [Suspect]
     Dosage: 70 MG,
  3. FENTANYL [Suspect]
     Dosage: 350 MG,
  4. METARAMINOL TARTRATE (METARAMINOL TARTRATE) [Suspect]
     Dosage: 7.6 MG,
  5. ALFENTANIL HYDROCHLORIDE (ALFENTANIL HYDROCHLORIDE) [Suspect]
     Dosage: 1 MG, UID/QD,
  6. CISATRACURIUM BESILATE (CISATRACURIUM BESILATE) [Suspect]
     Dosage: 14 MG, UID/QD,
  7. METOPROLOL TARTRATE (METOPROLOL TARTRATE) TABLET [Concomitant]
  8. FLECAINIDE ACETATE [Concomitant]
  9. PREDNISOLONE [Concomitant]

REACTIONS (3)
  - DEPRESSED LEVEL OF CONSCIOUSNESS [None]
  - ENCEPHALOPATHY [None]
  - POST PROCEDURAL COMPLICATION [None]
